FAERS Safety Report 8078093-2 (Version None)
Quarter: 2012Q1

REPORT INFORMATION
  Report Type: 
  Country: None (occurrence: None)
  Receive Date: 20120127
  Receipt Date: 20110110
  Transmission Date: 20120608
  Serious: No
  Sender: FDA-Public Use
  Company Number: US-ABBOTT-11P-163-0696197-00

PATIENT
  Sex: Female
  Weight: 70.824 kg

DRUGS (10)
  1. FISH OIL [Concomitant]
     Indication: MINERAL SUPPLEMENTATION
  2. FEMARA [Concomitant]
     Indication: BREAST CANCER
  3. FOLIC ACID [Concomitant]
     Indication: VITAMIN SUPPLEMENTATION
  4. MULTI-VITAMIN [Concomitant]
     Indication: VITAMIN SUPPLEMENTATION
  5. HUMIRA [Suspect]
     Indication: RHEUMATOID ARTHRITIS
     Dates: start: 20100801
  6. CALCIUM [Concomitant]
     Indication: MINERAL SUPPLEMENTATION
  7. HYDROXYCHLORIDE [Concomitant]
     Indication: RHEUMATOID ARTHRITIS
  8. DICLOFENAC EPOLAMINE [Concomitant]
     Indication: RHEUMATOID ARTHRITIS
  9. IBUPROFEN [Concomitant]
     Indication: PAIN
  10. METHOTREXATE [Concomitant]
     Indication: RHEUMATOID ARTHRITIS

REACTIONS (5)
  - INJECTION SITE NODULE [None]
  - INJECTION SITE ERYTHEMA [None]
  - INJECTION SITE REACTION [None]
  - INJECTION SITE PRURITUS [None]
  - INJECTION SITE SWELLING [None]
